FAERS Safety Report 8162759-X (Version None)
Quarter: 2012Q1

REPORT INFORMATION
  Report Type: 
  Country: None (occurrence: None)
  Receive Date: 20120224
  Receipt Date: 20120215
  Transmission Date: 20120608
  Serious: Yes (Death, Other)
  Sender: FDA-Public Use
  Company Number: JP-B.I. PHARMACEUTICALS,INC./RIDGEFIELD-2012-EU-01003GD

PATIENT
  Age: 70 Year
  Sex: Female

DRUGS (2)
  1. WARFARIN SODIUM [Concomitant]
     Route: 048
  2. PRADAXA [Suspect]
     Route: 048

REACTIONS (3)
  - SEPSIS [None]
  - CEREBRAL INFARCTION [None]
  - TROUSSEAU'S SYNDROME [None]
